FAERS Safety Report 9179972 (Version 1)
Quarter: 2012Q4

REPORT INFORMATION
  Report Type: 
  Country: IT (occurrence: IT)
  Receive Date: 20121029
  Receipt Date: 20121029
  Transmission Date: 20130627
  Serious: Yes (Hospitalization)
  Sender: FDA-Public Use
  Company Number: IT-ROCHE-1149729

PATIENT
  Age: 67 None
  Sex: Female

DRUGS (7)
  1. ROACTEMRA [Suspect]
     Indication: RHEUMATOID ARTHRITIS
     Route: 042
     Dates: start: 20111011, end: 20120828
  2. METHOTREXATE [Concomitant]
     Route: 030
     Dates: start: 20020315, end: 20121017
  3. FOLINIC ACID [Concomitant]
     Route: 048
     Dates: start: 20020315, end: 20121017
  4. DICLOFENAC [Concomitant]
     Route: 048
     Dates: start: 20060424, end: 20121017
  5. ESOMEPRAZOLE [Concomitant]
     Route: 065
     Dates: start: 20011017, end: 20121017
  6. FUROSEMIDE [Concomitant]
     Route: 048
     Dates: start: 20010113, end: 20121017
  7. COLECALCIFEROLO [Concomitant]
     Route: 048
     Dates: start: 20110119, end: 20121017

REACTIONS (2)
  - Diarrhoea infectious [Recovered/Resolved]
  - Renal failure acute [Recovered/Resolved]
